FAERS Safety Report 4972006-5 (Version None)
Quarter: 2006Q2

REPORT INFORMATION
  Report Type: 
  Country: None (occurrence: None)
  Receive Date: 20060412
  Receipt Date: 20060412
  Transmission Date: 20061013
  Serious: No
  Sender: FDA-Public Use
  Company Number: None

PATIENT
  Age: 37 Year

DRUGS (2)
  1. GEODON [Suspect]
     Indication: BIPOLAR I DISORDER
     Dosage: 160MG  AT BEDTIME PO
     Route: 048
     Dates: start: 20060206, end: 20060320
  2. GEODON [Suspect]
     Indication: POST-TRAUMATIC STRESS DISORDER
     Dosage: 160MG  AT BEDTIME PO
     Route: 048
     Dates: start: 20060206, end: 20060320

REACTIONS (7)
  - AFFECT LABILITY [None]
  - AGGRESSION [None]
  - DEPRESSION [None]
  - FALL [None]
  - HAEMATOCHEZIA [None]
  - INSOMNIA [None]
  - IRRITABILITY [None]
